APPROVED DRUG PRODUCT: TRELSTAR
Active Ingredient: TRIPTORELIN PAMOATE
Strength: EQ 11.25MG BASE/VIAL
Dosage Form/Route: INJECTABLE;INTRAMUSCULAR
Application: N021288 | Product #001
Applicant: VERITY PHARMACEUTICALS INC
Approved: Jun 29, 2001 | RLD: Yes | RS: Yes | Type: RX